FAERS Safety Report 25572242 (Version 1)
Quarter: 2025Q3

REPORT INFORMATION
  Report Type: Spontaneous
  Country: JP (occurrence: JP)
  Receive Date: 20250717
  Receipt Date: 20250717
  Transmission Date: 20251021
  Serious: Yes (Other)
  Sender: GILEAD
  Company Number: JP-GILEAD-2025-0720865

PATIENT
  Age: 69 Year
  Sex: Male

DRUGS (10)
  1. YESCARTA [Suspect]
     Active Substance: AXICABTAGENE CILOLEUCEL
     Indication: High-grade B-cell lymphoma
     Route: 041
  2. CYCLOPHOSPHAMIDE [Concomitant]
     Active Substance: CYCLOPHOSPHAMIDE
     Indication: Lymphodepletion
  3. CYCLOPHOSPHAMIDE [Concomitant]
     Active Substance: CYCLOPHOSPHAMIDE
     Indication: Chemotherapy
  4. FLUDARABINE PHOSPHATE [Concomitant]
     Active Substance: FLUDARABINE PHOSPHATE
     Indication: Lymphodepletion
  5. FLUDARABINE PHOSPHATE [Concomitant]
     Active Substance: FLUDARABINE PHOSPHATE
     Indication: Chemotherapy
  6. RITUXIMAB [Concomitant]
     Active Substance: RITUXIMAB
     Indication: High-grade B-cell lymphoma
  7. ETOPOSIDE [Concomitant]
     Active Substance: ETOPOSIDE
     Indication: High-grade B-cell lymphoma
  8. METHYLPREDNISOLONE [Concomitant]
     Active Substance: METHYLPREDNISOLONE
     Indication: High-grade B-cell lymphoma
  9. CYTARABINE [Concomitant]
     Active Substance: CYTARABINE
     Indication: High-grade B-cell lymphoma
  10. CISPLATIN [Concomitant]
     Active Substance: CISPLATIN
     Indication: High-grade B-cell lymphoma

REACTIONS (4)
  - Immune effector cell-associated haematotoxicity [Unknown]
  - Cytokine release syndrome [Recovered/Resolved]
  - Immune effector cell-associated neurotoxicity syndrome [Recovered/Resolved]
  - Hypogammaglobulinaemia [Unknown]
